FAERS Safety Report 23782968 (Version 1)
Quarter: 2024Q2

REPORT INFORMATION
  Report Type: Spontaneous
  Country: US (occurrence: None)
  Receive Date: 20240424
  Receipt Date: 20240424
  Transmission Date: 20240716
  Serious: No
  Sender: FDA-Public Use
  Company Number: None

PATIENT
  Age: 74 Year
  Sex: Female

DRUGS (1)
  1. EVEROLIMUS [Suspect]
     Active Substance: EVEROLIMUS
     Indication: Breast cancer female
     Dosage: FREQUENCY : DAILY;?

REACTIONS (7)
  - Pruritus [None]
  - Diarrhoea [None]
  - Fatigue [None]
  - Cough [None]
  - Dysphonia [None]
  - Depression [None]
  - Decreased activity [None]
